FAERS Safety Report 4583772-5 (Version None)
Quarter: 2005Q1

REPORT INFORMATION
  Report Type: 
  Country: None (occurrence: None)
  Receive Date: 20050216
  Receipt Date: 20050208
  Transmission Date: 20050727
  Serious: Yes (Death)
  Sender: FDA-Public Use
  Company Number: 200511182GDDC

PATIENT
  Age: 82 Year
  Sex: Male

DRUGS (3)
  1. GLIBENCLAMIDE [Suspect]
     Indication: DIABETES MELLITUS
     Route: 048
     Dates: end: 20041226
  2. ASPIRIN [Concomitant]
     Indication: CARDIAC FAILURE
     Route: 048
     Dates: end: 20041226
  3. CO-AMILOFRUSE [Concomitant]
     Indication: CARDIAC FAILURE
     Dosage: DOSE: 2 TABS
     Route: 048
     Dates: start: 20041226, end: 20041226

REACTIONS (5)
  - BRAIN DAMAGE [None]
  - CONDITION AGGRAVATED [None]
  - HYPOGLYCAEMIA [None]
  - NEUROGLYCOPENIA [None]
  - RENAL FAILURE CHRONIC [None]
